FAERS Safety Report 13034772 (Version 1)
Quarter: 2016Q4

REPORT INFORMATION
  Report Type: Spontaneous
  Country: US (occurrence: US)
  Receive Date: 20161216
  Receipt Date: 20161216
  Transmission Date: 20170207
  Serious: No
  Sender: FDA-Public Use
  Company Number: US-BAUSCH-BL-2016-013175

PATIENT
  Age: 70 Year
  Sex: Female
  Weight: 77.18 kg

DRUGS (1)
  1. TIMOPTIC [Suspect]
     Active Substance: TIMOLOL MALEATE
     Indication: INTRAOCULAR PRESSURE INCREASED
     Route: 061
     Dates: start: 20160517, end: 20160517

REACTIONS (4)
  - Eye swelling [Recovered/Resolved]
  - Skin exfoliation [Recovering/Resolving]
  - Eye pruritus [Recovering/Resolving]
  - Dry eye [Unknown]

NARRATIVE: CASE EVENT DATE: 201605
